FAERS Safety Report 20376457 (Version 1)
Quarter: 2022Q1

REPORT INFORMATION
  Report Type: Spontaneous
  Country: JP (occurrence: JP)
  Receive Date: 20220125
  Receipt Date: 20220125
  Transmission Date: 20220423
  Serious: Yes (Other)
  Sender: FDA-Public Use
  Company Number: JP-BRISTOL-MYERS SQUIBB COMPANY-BMS-2017-118516

PATIENT
  Age: 65 Year
  Sex: Male
  Weight: 59 kg

DRUGS (24)
  1. OPDIVO [Suspect]
     Active Substance: NIVOLUMAB
     Indication: Non-small cell lung cancer recurrent
     Dosage: 170.0 MG/DAY
     Route: 041
     Dates: start: 20160516
  2. OPDIVO [Suspect]
     Active Substance: NIVOLUMAB
     Dosage: 170.0 MG/DAY
     Route: 041
     Dates: start: 20160602
  3. OPDIVO [Suspect]
     Active Substance: NIVOLUMAB
     Dosage: 170.0 MG/DAY
     Route: 041
     Dates: start: 20160616
  4. OPDIVO [Suspect]
     Active Substance: NIVOLUMAB
     Dosage: 170.0 MG/DAY
     Route: 041
     Dates: start: 20160630
  5. OPDIVO [Suspect]
     Active Substance: NIVOLUMAB
     Dosage: 170.0 MG/DAY
     Route: 041
     Dates: start: 20160714
  6. OPDIVO [Suspect]
     Active Substance: NIVOLUMAB
     Dosage: 170.0 MG/DAY
     Route: 041
     Dates: start: 20160804
  7. OPDIVO [Suspect]
     Active Substance: NIVOLUMAB
     Dosage: 170.0 MG/DAY
     Route: 041
     Dates: start: 20160818
  8. OPDIVO [Suspect]
     Active Substance: NIVOLUMAB
     Dosage: 170.0 MG/DAY
     Route: 041
     Dates: start: 20160901
  9. OPDIVO [Suspect]
     Active Substance: NIVOLUMAB
     Dosage: 170.0 MG/DAY
     Route: 041
     Dates: start: 20170622
  10. OPDIVO [Suspect]
     Active Substance: NIVOLUMAB
     Dosage: 170.0 MG/DAY
     Route: 041
     Dates: start: 20170706
  11. OPDIVO [Suspect]
     Active Substance: NIVOLUMAB
     Dosage: 170.0 MG/DAY
     Route: 041
     Dates: start: 20170720
  12. OPDIVO [Suspect]
     Active Substance: NIVOLUMAB
     Dosage: 170.0 MG/DAY
     Route: 041
     Dates: start: 20170803
  13. OPDIVO [Suspect]
     Active Substance: NIVOLUMAB
     Dosage: 170.0 MG/DAY
     Route: 041
     Dates: start: 20170817
  14. OPDIVO [Suspect]
     Active Substance: NIVOLUMAB
     Dosage: 170.0 MG/DAY
     Route: 041
     Dates: start: 20170831
  15. OPDIVO [Suspect]
     Active Substance: NIVOLUMAB
     Dosage: 170 MILLIGRAM
     Route: 041
     Dates: start: 20170914
  16. OPDIVO [Suspect]
     Active Substance: NIVOLUMAB
     Dosage: 170 MILLIGRAM
     Route: 041
     Dates: start: 20170928
  17. OPDIVO [Suspect]
     Active Substance: NIVOLUMAB
     Dosage: 170 MILLIGRAM
     Route: 041
     Dates: start: 20171012
  18. BROTIZOLAM [Concomitant]
     Active Substance: BROTIZOLAM
     Indication: Product used for unknown indication
     Dosage: UNK
     Route: 048
  19. NEXIUM [Concomitant]
     Active Substance: ESOMEPRAZOLE MAGNESIUM
     Indication: Product used for unknown indication
     Dosage: UNK
     Route: 048
  20. TAMSULOSIN HYDROCHLORIDE [Concomitant]
     Active Substance: TAMSULOSIN HYDROCHLORIDE
     Indication: Product used for unknown indication
     Dosage: UNK
     Route: 048
  21. GLIMEPIRIDE [Concomitant]
     Active Substance: GLIMEPIRIDE
     Indication: Product used for unknown indication
     Dosage: UNK
     Route: 048
  22. VILDAGLIPTIN [Concomitant]
     Active Substance: VILDAGLIPTIN
     Indication: Product used for unknown indication
     Dosage: UNK
     Route: 048
  23. ASPIRIN [Concomitant]
     Active Substance: ASPIRIN
     Indication: Product used for unknown indication
     Dosage: UNK
     Route: 048
  24. MAGNESIUM OXIDE [Concomitant]
     Active Substance: MAGNESIUM OXIDE
     Indication: Product used for unknown indication
     Dosage: UNK
     Route: 048

REACTIONS (5)
  - Interstitial lung disease [Recovering/Resolving]
  - Malignant neoplasm progression [Unknown]
  - Malignant transformation [Unknown]
  - Small cell lung cancer [Unknown]
  - Prescribed underdose [Unknown]

NARRATIVE: CASE EVENT DATE: 20160707
